FAERS Safety Report 8907935 (Version 1)
Quarter: 2012Q4

REPORT INFORMATION
  Report Type: 
  Country: US (occurrence: US)
  Receive Date: 20121113
  Receipt Date: 20121113
  Transmission Date: 20130627
  Serious: No
  Sender: FDA-Public Use
  Company Number: US-AMGEN-USASP2012038972

PATIENT
  Age: 44 Year
  Sex: Female

DRUGS (14)
  1. ENBREL [Suspect]
     Indication: PRODUCT USED FOR UNKNOWN INDICATION
     Dosage: 50 mg/ml, qwk
     Route: 058
  2. LORATADINE [Concomitant]
     Dosage: 10 mg, UNK
  3. NABUMETONE [Concomitant]
     Dosage: 500 mg, UNK
  4. CYCLOBENZAPRINE [Concomitant]
     Dosage: 10 mg, UNK
  5. OMEPRAZOLE [Concomitant]
     Dosage: 40 mg, UNK
  6. PROMETHAZINE [Concomitant]
     Dosage: 25 mg, UNK
  7. VITAMIN E                          /00110501/ [Concomitant]
     Dosage: 400 unit, UNK
  8. HYDROCODONE/ACETAMINOPHEN          /00607101/ [Concomitant]
     Dosage: 7.5-500
  9. VITAMIN C                          /00008001/ [Concomitant]
     Dosage: 100 mg, UNK
  10. VITAMIN B-1 [Concomitant]
     Dosage: 250 mg, UNK
  11. VITAMIN D /00107901/ [Concomitant]
     Dosage: 400 unit, UNK
  12. CALCIUM [Concomitant]
     Dosage: 500 mg, UNK
  13. SUPER B COMPL [Concomitant]
     Dosage: UNK
  14. MULTIVITAMINS, PLAIN [Concomitant]
     Dosage: UNK

REACTIONS (2)
  - Pyrexia [Unknown]
  - Nasopharyngitis [Unknown]
